FAERS Safety Report 17279762 (Version 1)
Quarter: 2020Q1

REPORT INFORMATION
  Report Type: Report from Study
  Country: None (occurrence: US)
  Receive Date: 20200116
  Receipt Date: 20200116
  Transmission Date: 20200409
  Serious: Yes (Other)
  Sender: FDA-Public Use
  Company Number: US-ABBVIE-20K-163-3229922-00

PATIENT
  Age: 87 Year
  Sex: Female

DRUGS (1)
  1. VENCLEXTA [Suspect]
     Active Substance: VENETOCLAX
     Indication: ACUTE MYELOID LEUKAEMIA
     Route: 048
     Dates: start: 20191201

REACTIONS (12)
  - Loss of personal independence in daily activities [Unknown]
  - Platelet transfusion [Unknown]
  - Nausea [Recovered/Resolved]
  - Platelet count decreased [Unknown]
  - Gait disturbance [Unknown]
  - Peripheral swelling [Unknown]
  - Emotional distress [Unknown]
  - Asthenia [Unknown]
  - Urine output decreased [Unknown]
  - Transfusion [Unknown]
  - Chromaturia [Unknown]
  - Back pain [Unknown]

NARRATIVE: CASE EVENT DATE: 201912
